FAERS Safety Report 25625860 (Version 2)
Quarter: 2025Q3

REPORT INFORMATION
  Report Type: Spontaneous
  Country: US (occurrence: US)
  Receive Date: 20250731
  Receipt Date: 20250806
  Transmission Date: 20251021
  Serious: No
  Sender: JOHNSON AND JOHNSON
  Company Number: US-JNJFOC-20250736463

PATIENT
  Age: 35 Year
  Sex: Female
  Weight: 72.57 kg

DRUGS (3)
  1. TREMFYA [Suspect]
     Active Substance: GUSELKUMAB
     Indication: Psoriasis
     Route: 058
     Dates: start: 20250707
  2. TREMFYA [Suspect]
     Active Substance: GUSELKUMAB
     Indication: Guttate psoriasis
  3. TALTZ [Concomitant]
     Active Substance: IXEKIZUMAB
     Indication: Psoriasis
     Route: 058

REACTIONS (7)
  - Dry eye [Unknown]
  - Nasal dryness [Unknown]
  - Dry mouth [Unknown]
  - Dizziness [Unknown]
  - Inappropriate schedule of product administration [Unknown]
  - Off label use [Unknown]
  - Product use in unapproved indication [Unknown]

NARRATIVE: CASE EVENT DATE: 20250728
